FAERS Safety Report 9528202 (Version 1)
Quarter: 2013Q3

REPORT INFORMATION
  Report Type: Report from Study
  Country: BR (occurrence: BR)
  Receive Date: 20130917
  Receipt Date: 20130917
  Transmission Date: 20140515
  Serious: Yes (Death, Other)
  Sender: FDA-Public Use
  Company Number: PHHY2013BR102691

PATIENT
  Age: 1 Year
  Sex: Female

DRUGS (3)
  1. OXCARBAZEPINE [Suspect]
     Indication: CONVULSION
     Dosage: 1 ML, BID
     Route: 048
  2. AMATO [Concomitant]
     Indication: CONVULSION
     Dosage: 25 MG, BID
     Route: 048
  3. DIAZEPAM [Concomitant]
     Indication: ANXIETY
     Dosage: 5 MG, BID
     Route: 048

REACTIONS (2)
  - Septic shock [Fatal]
  - Diarrhoea [Unknown]
